FAERS Safety Report 10562542 (Version 1)
Quarter: 2014Q4

REPORT INFORMATION
  Report Type: Spontaneous
  Country: US (occurrence: None)
  Receive Date: 20141103
  Receipt Date: 20141103
  Transmission Date: 20150529
  Serious: Yes (Disabling)
  Sender: FDA-Public Use
  Company Number: None

PATIENT
  Age: 60 Year
  Sex: Female
  Weight: 102.06 kg

DRUGS (8)
  1. CELEXA [Concomitant]
     Active Substance: CITALOPRAM HYDROBROMIDE
  2. NEURONTIN [Concomitant]
     Active Substance: GABAPENTIN
  3. FLONASE [Concomitant]
     Active Substance: FLUTICASONE PROPIONATE
  4. DYAZIDE [Concomitant]
     Active Substance: HYDROCHLOROTHIAZIDE\TRIAMTERENE
  5. LEVAQUIN [Suspect]
     Active Substance: LEVOFLOXACIN
     Indication: RESPIRATORY TRACT INFECTION
     Dates: start: 20140505, end: 20140530
  6. PRILOSEC OTC [Concomitant]
     Active Substance: OMEPRAZOLE MAGNESIUM
  7. SYMBICORT [Concomitant]
     Active Substance: BUDESONIDE\FORMOTEROL FUMARATE DIHYDRATE
  8. CLARITIN [Concomitant]
     Active Substance: LORATADINE

REACTIONS (4)
  - Arthralgia [None]
  - Joint swelling [None]
  - Dysstasia [None]
  - Drug ineffective [None]

NARRATIVE: CASE EVENT DATE: 20140505
